FAERS Safety Report 16987739 (Version 1)
Quarter: 2019Q4

REPORT INFORMATION
  Report Type: Spontaneous
  Country: FR (occurrence: FR)
  Receive Date: 20191104
  Receipt Date: 20191104
  Transmission Date: 20200122
  Serious: Yes (Hospitalization, Other)
  Sender: FDA-Public Use
  Company Number: FR-AUROBINDO-AUR-APL-2019-070088

PATIENT
  Age: 80 Year
  Sex: Male
  Weight: 67 kg

DRUGS (13)
  1. TRAMADOL. [Concomitant]
     Active Substance: TRAMADOL
     Indication: PAIN
     Dosage: 50 MILLIGRAM, FOUR TIMES/DAY, SI BESOIN
     Route: 048
     Dates: start: 20190830
  2. ALPRAZOLAM. [Concomitant]
     Active Substance: ALPRAZOLAM
     Indication: ANXIETY
     Dosage: 0.25 MILLIGRAM, ONCE A DAY
     Route: 048
  3. VALACICLOVIR [Concomitant]
     Active Substance: VALACYCLOVIR HYDROCHLORIDE
     Indication: PROPHYLAXIS
     Dosage: 1000 MILLIGRAM, ONCE A DAY
     Route: 048
     Dates: start: 20190905
  4. GAVISCON [Concomitant]
     Active Substance: ALUMINUM HYDROXIDE\MAGNESIUM CARBONATE
     Indication: GASTRITIS
     Dosage: 3 DOSAGE FORM, ONCE A DAY
     Route: 048
  5. PREDNISONE. [Suspect]
     Active Substance: PREDNISONE
     Indication: PLASMA CELL MYELOMA
     Dosage: 105 MILLIGRAM, CYCLICAL
     Route: 048
     Dates: start: 20190919, end: 20190922
  6. AMOXICILLIN. [Concomitant]
     Active Substance: AMOXICILLIN
     Indication: PROPHYLAXIS
     Dosage: 1000 MILLIGRAM, ONCE A DAY
     Route: 048
     Dates: start: 20190905
  7. PANTOPRAZOLE [Concomitant]
     Active Substance: PANTOPRAZOLE
     Indication: GASTRITIS
     Dosage: 20 MILLIGRAM, ONCE A DAY
     Route: 048
  8. MELPHALAN. [Suspect]
     Active Substance: MELPHALAN
     Dosage: 16 MILLIGRAM, 1 CYCLE
     Route: 048
     Dates: start: 20190919, end: 20190922
  9. PERINDOPRIL [Concomitant]
     Active Substance: PERINDOPRIL
     Indication: CORONARY ARTERY DISEASE
     Dosage: 4 MILLIGRAM, ONCE A DAY
     Route: 048
  10. VELCADE [Suspect]
     Active Substance: BORTEZOMIB
     Indication: PLASMA CELL MYELOMA
     Dosage: 2.25 MILLIGRAM, CYCLICAL
     Route: 058
     Dates: start: 20190919, end: 20190919
  11. ATORVASTATIN [Concomitant]
     Active Substance: ATORVASTATIN
     Indication: DYSLIPIDAEMIA
     Dosage: 80 MILLIGRAM, ONCE A DAY
     Route: 048
  12. BACTRIM [Concomitant]
     Active Substance: SULFAMETHOXAZOLE\TRIMETHOPRIM
     Indication: PROPHYLAXIS
     Dosage: 3 DOSAGE FORM, EVERY WEEK
     Route: 048
     Dates: start: 20190905
  13. LEDERFOLINE [Concomitant]
     Active Substance: LEUCOVORIN CALCIUM
     Indication: PROPHYLAXIS
     Dosage: 1 DOSAGE FORM, EVERY WEEK
     Route: 048
     Dates: start: 20190905

REACTIONS (1)
  - Pancreatitis [Recovered/Resolved]

NARRATIVE: CASE EVENT DATE: 20190923
